FAERS Safety Report 8982650 (Version 2)
Quarter: 2013Q1

REPORT INFORMATION
  Report Type: Spontaneous
  Country: US (occurrence: US)
  Receive Date: 20121221
  Receipt Date: 20130126
  Transmission Date: 20140127
  Serious: No
  Sender: FDA-Public Use
  Company Number: US-009507513-1212USA006955

PATIENT
  Age: 70 Year
  Sex: Male

DRUGS (2)
  1. NASONEX [Suspect]
     Indication: HYPERSENSITIVITY
     Dosage: 50 MICROGRAM/2??METERED SPRAYS, QD
     Route: 045
     Dates: start: 20121116
  2. AMBIEN [Concomitant]

REACTIONS (3)
  - Upper-airway cough syndrome [Recovering/Resolving]
  - Drug dose omission [Unknown]
  - Product quality issue [Unknown]
